FAERS Safety Report 5784023-6 (Version None)
Quarter: 2008Q2

REPORT INFORMATION
  Report Type: 
  Country: None (occurrence: None)
  Receive Date: 20080605
  Receipt Date: 20080328
  Transmission Date: 20081010
  Serious: No
  Sender: FDA-Public Use
  Company Number: A0718057A

PATIENT
  Sex: Female
  Weight: 92 kg

DRUGS (2)
  1. ALLI [Suspect]
  2. FISH OIL TABLETS [Concomitant]

REACTIONS (2)
  - ABDOMINAL DISTENSION [None]
  - CHANGE OF BOWEL HABIT [None]
